FAERS Safety Report 8509258-0 (Version None)
Quarter: 2012Q3

REPORT INFORMATION
  Report Type: 
  Country: None (occurrence: None)
  Receive Date: 20120713
  Receipt Date: 20120703
  Transmission Date: 20120928
  Serious: Yes (Disabling)
  Sender: FDA-Public Use
  Company Number: US-MSD-1207USA001011

PATIENT

DRUGS (1)
  1. PROPECIA [Suspect]
     Indication: ANDROGENETIC ALOPECIA
     Dosage: UNK
     Dates: start: 20040601

REACTIONS (2)
  - SEXUAL DYSFUNCTION [None]
  - COGNITIVE DISORDER [None]
